FAERS Safety Report 12094881 (Version 1)
Quarter: 2016Q1

REPORT INFORMATION
  Report Type: Spontaneous
  Country: GB (occurrence: GB)
  Receive Date: 20160219
  Receipt Date: 20160219
  Transmission Date: 20160526
  Serious: Yes (Hospitalization)
  Sender: FDA-Public Use
  Company Number: ALCN2014GB003707

PATIENT
  Sex: Female

DRUGS (2)
  1. DEXAMETHASONE. [Suspect]
     Active Substance: DEXAMETHASONE
     Indication: UVEITIS
     Dosage: 1 DF, Q2H
     Route: 047
     Dates: end: 201311
  2. DEXAMETHASONE. [Suspect]
     Active Substance: DEXAMETHASONE
     Dosage: 1 DF, QH (IN CASE OF A FLARE UP)
     Route: 047
     Dates: end: 201311

REACTIONS (10)
  - Heart rate increased [Unknown]
  - Blood sodium decreased [Unknown]
  - Blood pressure decreased [Unknown]
  - Keratopathy [Unknown]
  - Blood chloride decreased [Unknown]
  - Gastrointestinal disorder [Unknown]
  - Eye pain [Unknown]
  - Eye discharge [Unknown]
  - Ocular discomfort [Unknown]
  - Dry eye [Unknown]
